FAERS Safety Report 14536432 (Version 3)
Quarter: 2018Q1

REPORT INFORMATION
  Report Type: Report from Study
  Country: BR (occurrence: BR)
  Receive Date: 20180215
  Receipt Date: 20180222
  Transmission Date: 20180509
  Serious: Yes (Hospitalization, Other)
  Sender: FDA-Public Use
  Company Number: PHHY2018BR025466

PATIENT
  Age: 46 Year
  Sex: Female
  Weight: 53 kg

DRUGS (12)
  1. AMATO [Concomitant]
     Active Substance: TOPIRAMATE
     Indication: EPILEPSY
     Dosage: 1 DF, QD (IN THE MORNING)
     Route: 065
     Dates: start: 2011
  2. TEGRETOL XR [Suspect]
     Active Substance: CARBAMAZEPINE
     Indication: EPILEPSY
     Dosage: 2 DF (400 MG), QD
     Route: 065
  3. TEGRETOL XR [Suspect]
     Active Substance: CARBAMAZEPINE
     Dosage: 3 DF (400 MG), QD (EVERY 8 HOURS IN MORNING, AFTERNOON AND NIGHT)
     Route: 065
     Dates: start: 20180207
  4. CARBAMAZEPINE. [Suspect]
     Active Substance: CARBAMAZEPINE
     Indication: PRODUCT USED FOR UNKNOWN INDICATION
     Route: 065
  5. TOPIRAMATE. [Suspect]
     Active Substance: TOPIRAMATE
     Dosage: 100 MG, QN (JUST AT NIGHT)
     Route: 065
  6. RECONTER [Concomitant]
     Active Substance: ESCITALOPRAM OXALATE
     Indication: PRODUCT USED FOR UNKNOWN INDICATION
     Route: 065
  7. URBANIL [Concomitant]
     Active Substance: CLOBAZAM
     Indication: PRODUCT USED FOR UNKNOWN INDICATION
     Route: 065
  8. TOPIRAMATE. [Suspect]
     Active Substance: TOPIRAMATE
     Indication: EPILEPSY
     Dosage: 1 DF (50, UNITS NOT REPORTED), QD
     Route: 065
  9. TEGRETOL XR [Suspect]
     Active Substance: CARBAMAZEPINE
     Dosage: 200 MG, Q8H
     Route: 065
     Dates: start: 20161026, end: 20171026
  10. TEGRETOL [Suspect]
     Active Substance: CARBAMAZEPINE
     Indication: EPILEPSY
     Dosage: 200 MG, BID (SHE USED IN THE MORNING AND AT NIGHT) (A SHORT TIME AGO)
     Route: 065
  11. AMATO [Concomitant]
     Active Substance: TOPIRAMATE
     Dosage: 1 DF, QD (IN THE MORNING AND AT NIGHT)
     Route: 065
  12. AMATO [Concomitant]
     Active Substance: TOPIRAMATE
     Dosage: 1 DF, QD (IN THE MORNING, IN THE AFTERNOON AND AT NIGHT)
     Route: 065

REACTIONS (11)
  - Epilepsy [Recovering/Resolving]
  - Menstruation irregular [Unknown]
  - Drug ineffective [Unknown]
  - Feeling abnormal [Unknown]
  - Drug dependence [Unknown]
  - Dizziness [Recovering/Resolving]
  - Confusional state [Unknown]
  - Loss of consciousness [Unknown]
  - Asthenia [Unknown]
  - Drug intolerance [Unknown]
  - Malaise [Unknown]

NARRATIVE: CASE EVENT DATE: 20170809
